FAERS Safety Report 9524065 (Version 1)
Quarter: 2013Q1

REPORT INFORMATION
  Report Type: Spontaneous
  Country: US (occurrence: None)
  Receive Date: 20130305
  Receipt Date: 20130305
  Transmission Date: 20140127
  Serious: No
  Sender: FDA-Public Use
  Company Number: 163-21880-12032719

PATIENT
  Age: 72 Year
  Sex: Male

DRUGS (14)
  1. REVLIMID (LENALIDOMIDE) (10 MG, CAPSULES) [Suspect]
     Indication: MYELODYSPLASTIC SYNDROME
     Dosage: 10MG, 1 IN 1 D, PO
     Route: 048
     Dates: start: 20120215, end: 20120223
  2. METFORMIN (METFORMIN) [Concomitant]
  3. METOPROLOL (METOPROLOL) [Concomitant]
  4. LISINOPRIL (LISINOPRIL) [Concomitant]
  5. LIPITOR (ATORVASTATIN) (TABLETS) [Concomitant]
  6. IMDUR (ISOSORBIDE MONONITRATE) [Concomitant]
  7. FOLIC ACID (FOLIC ACID) [Concomitant]
  8. VITAMIN E (TOCOPHEROL) [Concomitant]
  9. CENTRUM (CENTRUM) [Concomitant]
  10. FISH OIL (FISH OIL) [Concomitant]
  11. FLEXAMIN (JOINT FOOD) [Concomitant]
  12. ASA (ACETYLSALICYLIC ACID) [Concomitant]
  13. LANTUS (INSULIN GLARGINE) [Concomitant]
  14. HUMALOG (INSULIN LISPRO) [Concomitant]

REACTIONS (3)
  - Haemoglobin decreased [None]
  - White blood cell count decreased [None]
  - Platelet count decreased [None]
